FAERS Safety Report 6865473-3 (Version None)
Quarter: 2010Q3

REPORT INFORMATION
  Report Type: 
  Country: None (occurrence: None)
  Receive Date: 20100721
  Receipt Date: 20080616
  Transmission Date: 20110219
  Serious: No
  Sender: FDA-Public Use
  Company Number: US-PFIZER INC-2008035798

PATIENT
  Sex: Male
  Weight: 83.91 kg

DRUGS (7)
  1. CHANTIX [Suspect]
     Indication: SMOKING CESSATION THERAPY
     Dates: start: 20080415
  2. DILANTIN [Suspect]
     Indication: CONVULSION
  3. PHENOBARBITAL [Concomitant]
  4. LITHIUM [Concomitant]
  5. MONOPRIL [Concomitant]
     Indication: HYPERTENSION
  6. DILANTIN [Concomitant]
  7. PERCOCET [Concomitant]

REACTIONS (6)
  - DIARRHOEA [None]
  - DRUG DOSE OMISSION [None]
  - GINGIVAL HYPERPLASIA [None]
  - OVERDOSE [None]
  - ROAD TRAFFIC ACCIDENT [None]
  - TOBACCO USER [None]
